FAERS Safety Report 10064702 (Version 3)
Quarter: 2014Q2

REPORT INFORMATION
  Report Type: Spontaneous
  Country: NO (occurrence: NO)
  Receive Date: 20140408
  Receipt Date: 20140423
  Transmission Date: 20141212
  Serious: Yes (Disabling, Other)
  Sender: FDA-Public Use
  Company Number: NO-PFIZER INC-2014029121

PATIENT
  Age: 53 Year
  Sex: Male

DRUGS (12)
  1. NEURONTIN [Suspect]
     Indication: MIGRAINE WITH AURA
     Dosage: UNK
     Dates: start: 2000
  2. NEURONTIN [Suspect]
     Dosage: 300 MG, 3X/DAY
     Dates: start: 20031013, end: 2004
  3. NEURONTIN [Suspect]
     Dosage: 800 MG AND 1600 MG DAILY
     Dates: start: 20080502, end: 201402
  4. SAROTEX [Concomitant]
     Dosage: UNK
  5. CIPRALEX [Concomitant]
     Indication: DEPRESSION
     Dosage: 5 MG GRADUALLY INCREASED TO 15 MG IN 2014
     Dates: start: 20110607
  6. PARALGIN FORTE [Concomitant]
     Dosage: 1 DF, 1-3 TIMES A WEEK
     Dates: start: 20030324, end: 2004
  7. PARALGIN FORTE [Concomitant]
     Dosage: 1 DF, UP TO 4 TIMES A DAY
     Dates: start: 2004, end: 2004
  8. IMOVANE [Concomitant]
     Indication: INSOMNIA
     Dosage: 5 MG, UNK
  9. IMIGRAN [Concomitant]
     Indication: MIGRAINE
     Dosage: INJECTION FOR SEVERE MIGRAINE ATTACKS
     Dates: start: 2013
  10. PARACET [Concomitant]
     Indication: PAIN
     Dosage: 1 G, 4X/DAY AS NEEDED
     Dates: start: 20060210
  11. VOLTAREN [Concomitant]
     Indication: PAIN
     Dosage: 50 MG, 3X/DAY AS NEEDED
     Dates: start: 20060210
  12. IBUX [Concomitant]
     Indication: HEADACHE
     Dosage: UNK
     Dates: start: 20070319

REACTIONS (17)
  - Depression [Recovering/Resolving]
  - Emotional poverty [Not Recovered/Not Resolved]
  - Loss of libido [Not Recovered/Not Resolved]
  - Hyperchlorhydria [Not Recovered/Not Resolved]
  - Diarrhoea [Not Recovered/Not Resolved]
  - Fatigue [Unknown]
  - Anxiety [Recovering/Resolving]
  - Visual impairment [Unknown]
  - Balance disorder [Unknown]
  - Suicide attempt [Unknown]
  - Large intestinal stenosis [Unknown]
  - Headache [Unknown]
  - Arthralgia [Unknown]
  - Pain in extremity [Unknown]
  - Drug ineffective [Not Recovered/Not Resolved]
  - Irritable bowel syndrome [Unknown]
  - Haemorrhoids [Unknown]
